FAERS Safety Report 7409407-1 (Version None)
Quarter: 2011Q2

REPORT INFORMATION
  Report Type: 
  Country: None (occurrence: None)
  Receive Date: 20110412
  Receipt Date: 20110321
  Transmission Date: 20111010
  Serious: Yes (Hospitalization)
  Sender: FDA-Public Use
  Company Number: US-BAYER-2010-001682

PATIENT
  Sex: Female
  Weight: 58.957 kg

DRUGS (8)
  1. MIGRAINE MEDICATION [Concomitant]
     Indication: MIGRAINE
  2. YASMIN [Suspect]
  3. ANTICOAGULANTS [Concomitant]
     Indication: ANTICOAGULANT THERAPY
  4. TALACEN [Concomitant]
     Dosage: UNK
     Dates: start: 20000101
  5. YASMIN [Suspect]
     Indication: PREMENSTRUAL SYNDROME
     Dosage: UNK
     Dates: start: 20070101, end: 20100101
  6. YAZ [Suspect]
  7. COMBIVENT [Concomitant]
  8. YAZ [Suspect]
     Indication: PREMENSTRUAL SYNDROME
     Dosage: UNK
     Dates: start: 20070101, end: 20100101

REACTIONS (2)
  - PULMONARY EMBOLISM [None]
  - DEPRESSION [None]
